FAERS Safety Report 9951590 (Version 1)
Quarter: 2014Q1

REPORT INFORMATION
  Report Type: Report from Study
  Country: US (occurrence: US)
  Receive Date: 20140304
  Receipt Date: 20140304
  Transmission Date: 20141002
  Serious: No
  Sender: FDA-Public Use
  Company Number: US-ABBVIE-13P-163-1075756-00

PATIENT
  Age: 32 Year
  Sex: Male
  Weight: 81.72 kg

DRUGS (4)
  1. HUMIRA [Suspect]
     Indication: PSORIATIC ARTHROPATHY
     Dates: start: 201012
  2. METHOTREXATE [Concomitant]
     Indication: PSORIATIC ARTHROPATHY
  3. NAPROSYN [Concomitant]
     Indication: INFLAMMATION
  4. ZOFRAN [Concomitant]
     Indication: NAUSEA

REACTIONS (2)
  - Fatigue [Not Recovered/Not Resolved]
  - Nausea [Not Recovered/Not Resolved]
